FAERS Safety Report 21905593 (Version 1)
Quarter: 2023Q1

REPORT INFORMATION
  Report Type: Spontaneous
  Country: US (occurrence: None)
  Receive Date: 20230124
  Receipt Date: 20230124
  Transmission Date: 20230418
  Serious: Yes (unspecified)
  Sender: FDA-Public Use
  Company Number: None

PATIENT
  Age: 42 Year
  Sex: Male
  Weight: 72 kg

DRUGS (1)
  1. SALICYLIC ACID [Suspect]
     Active Substance: SALICYLIC ACID
     Indication: Skin papilloma
     Dosage: FREQUENCY : DAILY;?
     Route: 061
     Dates: start: 20221003, end: 20221019

REACTIONS (5)
  - Product dispensing error [None]
  - Thermal burn [None]
  - Toxicity to various agents [None]
  - Product administration error [None]
  - Wrong schedule [None]

NARRATIVE: CASE EVENT DATE: 20221017
